FAERS Safety Report 11103970 (Version 1)
Quarter: 2015Q2

REPORT INFORMATION
  Report Type: Report from Study
  Country: US (occurrence: US)
  Receive Date: 20150511
  Receipt Date: 20150511
  Transmission Date: 20150821
  Serious: Yes (Hospitalization)
  Sender: FDA-Public Use
  Company Number: US-GILEAD-2015-0152465

PATIENT
  Age: 53 Year
  Sex: Male

DRUGS (13)
  1. AMBRISENTAN [Suspect]
     Active Substance: AMBRISENTAN
     Dosage: 10 MG, QD
     Route: 065
     Dates: start: 20150505
  2. DOXEPIN [Concomitant]
     Active Substance: DOXEPIN
  3. AZITHROMYCIN [Concomitant]
     Active Substance: AZITHROMYCIN ANHYDROUS
  4. TYVASO [Concomitant]
     Active Substance: TREPROSTINIL
  5. CLOBETASOL [Concomitant]
     Active Substance: CLOBETASOL
  6. ONDANSETRON [Concomitant]
     Active Substance: ONDANSETRON
  7. BENZONATATE. [Concomitant]
     Active Substance: BENZONATATE
  8. HYDROCODONE BITARTRATE AND ACETAMINOPHEN [Concomitant]
     Active Substance: ACETAMINOPHEN\HYDROCODONE BITARTRATE
  9. IPRATROPIUM BROMIDE AND ALBUTEROL SULFATE [Concomitant]
     Active Substance: ALBUTEROL SULFATE\IPRATROPIUM BROMIDE
  10. SILDENAFIL. [Concomitant]
     Active Substance: SILDENAFIL
  11. AMBRISENTAN [Suspect]
     Active Substance: AMBRISENTAN
     Indication: PULMONARY ARTERIAL HYPERTENSION
     Dosage: 10 MG, QD
     Route: 065
     Dates: start: 20130206, end: 20150425
  12. DOCQLACE [Concomitant]
     Active Substance: DOCUSATE SODIUM
  13. COLACE [Concomitant]
     Active Substance: DOCUSATE SODIUM

REACTIONS (1)
  - Hypotension [Recovered/Resolved]

NARRATIVE: CASE EVENT DATE: 20150425
